FAERS Safety Report 11539344 (Version 1)
Quarter: 2015Q3

REPORT INFORMATION
  Report Type: Spontaneous
  Country: ES (occurrence: ES)
  Receive Date: 20150923
  Receipt Date: 20150923
  Transmission Date: 20151125
  Serious: Yes (Other)
  Sender: FDA-Public Use
  Company Number: ES-ACCORD-033871

PATIENT
  Age: 69 Year
  Sex: Male

DRUGS (2)
  1. CAPECITABIN ACCORD [Suspect]
     Active Substance: CAPECITABINE
     Indication: PANCREATIC CARCINOMA
     Dosage: STRENGTH: 500 MG?1000MG/12H D 1-14
     Route: 048
     Dates: start: 20150430
  2. TEMOZOLOMIE SUN [Suspect]
     Active Substance: TEMOZOLOMIDE
     Indication: PANCREATIC CARCINOMA
     Dosage: STRENGTH: 250 MG CAPSULES (5 CAPSULES)?280 M D 10-14
     Route: 048
     Dates: start: 20150430

REACTIONS (3)
  - Off label use [Unknown]
  - Chromatopsia [Not Recovered/Not Resolved]
  - Visual acuity reduced [Not Recovered/Not Resolved]

NARRATIVE: CASE EVENT DATE: 20150713
